FAERS Safety Report 9227503 (Version 1)
Quarter: 2013Q2

REPORT INFORMATION
  Report Type: Spontaneous
  Country: BR (occurrence: BR)
  Receive Date: 20130412
  Receipt Date: 20130412
  Transmission Date: 20140414
  Serious: Yes (Hospitalization, Other)
  Sender: FDA-Public Use
  Company Number: BR-ABBOTT-13P-020-1071987-00

PATIENT
  Sex: Female
  Weight: 62 kg

DRUGS (4)
  1. HUMIRA [Suspect]
     Indication: RHEUMATOID ARTHRITIS
     Route: 058
     Dates: start: 20090324, end: 201212
  2. ANTIBIOTICS [Suspect]
     Indication: WOUND
  3. UNKNOWN DRUG [Concomitant]
     Indication: HYPERTENSION
  4. UNKNOWN DRUG [Concomitant]
     Indication: DIABETES MELLITUS

REACTIONS (10)
  - Gastric disorder [Recovered/Resolved]
  - Blood glucose decreased [Unknown]
  - Syncope [Unknown]
  - Swelling [Unknown]
  - Wound [Not Recovered/Not Resolved]
  - Memory impairment [Unknown]
  - Spinal deformity [Unknown]
  - Arthralgia [Unknown]
  - Arthralgia [Unknown]
  - Impaired healing [Not Recovered/Not Resolved]
